FAERS Safety Report 15241832 (Version 2)
Quarter: 2018Q3

REPORT INFORMATION
  Report Type: Report from Study
  Country: JP (occurrence: JP)
  Receive Date: 20180805
  Receipt Date: 20180810
  Transmission Date: 20181010
  Serious: No
  Sender: FDA-Public Use
  Company Number: JP-BEH-2018093410

PATIENT
  Age: 48 Year
  Sex: Female
  Weight: 43 kg

DRUGS (28)
  1. TAZOBACTAM SODIUM [Concomitant]
     Active Substance: TAZOBACTAM SODIUM
     Indication: PROPHYLAXIS
     Dosage: UNK
     Route: 065
     Dates: start: 20180113, end: 20180121
  2. HEPARIN [Concomitant]
     Active Substance: HEPARIN SODIUM
     Indication: INTRAOPERATIVE CARE
     Dosage: UNK
     Route: 065
     Dates: end: 20180107
  3. NICARDIPINE HYDROCHLORIDE. [Concomitant]
     Active Substance: NICARDIPINE HYDROCHLORIDE
     Indication: INTRAOPERATIVE CARE
     Dosage: UNK
     Route: 065
     Dates: start: 20180104, end: 20180109
  4. BAYASPIRIN [Concomitant]
     Active Substance: ASPIRIN
     Route: 048
  5. HANP [Concomitant]
     Active Substance: CARPERITIDE
     Indication: POSTOPERATIVE CARE
     Dosage: UNK
     Route: 065
     Dates: start: 20180106, end: 20180121
  6. SELARA [Concomitant]
     Active Substance: EPLERENONE
     Dosage: UNK
     Route: 048
     Dates: end: 20180109
  7. SELARA [Concomitant]
     Active Substance: EPLERENONE
     Dosage: UNK
     Route: 048
     Dates: start: 20180130
  8. BERIPLEX P/N [Suspect]
     Active Substance: COAGULATION FACTOR IX HUMAN\COAGULATION FACTOR VII HUMAN\COAGULATION FACTOR X HUMAN\PROTEIN C\PROTEIN S HUMAN\PROTHROMBIN
     Indication: SURGERY
     Dosage: 750 IU, UNK
     Route: 042
     Dates: start: 20180104, end: 20180104
  9. HEPARIN [Concomitant]
     Active Substance: HEPARIN SODIUM
     Indication: POSTOPERATIVE CARE
  10. NICARDIPINE HYDROCHLORIDE. [Concomitant]
     Active Substance: NICARDIPINE HYDROCHLORIDE
     Indication: POSTOPERATIVE CARE
  11. NORADRENALINE                      /00127501/ [Concomitant]
     Active Substance: NOREPINEPHRINE
     Indication: INTRAOPERATIVE CARE
     Dosage: UNK
     Route: 065
     Dates: start: 20180104, end: 20180104
  12. AMLODIPINE BESILATE [Concomitant]
     Active Substance: AMLODIPINE BESYLATE
     Dosage: UNK
     Route: 048
     Dates: end: 20180106
  13. WARFARIN [Concomitant]
     Active Substance: WARFARIN
     Indication: VENTRICULAR ASSIST DEVICE INSERTION
     Dosage: 1 MG, UNK
     Route: 048
     Dates: start: 20171223, end: 20180103
  14. MYOCOR [Concomitant]
     Active Substance: NITROGLYCERIN
     Indication: POSTOPERATIVE CARE
  15. DALTEPARIN NA [Concomitant]
     Indication: POSTOPERATIVE CARE
     Dosage: UNK
     Route: 065
     Dates: start: 20180116, end: 20180124
  16. DOBUTAMINE [Concomitant]
     Active Substance: DOBUTAMINE\DOBUTAMINE HYDROCHLORIDE
     Indication: POSTOPERATIVE CARE
  17. MYOCOR [Concomitant]
     Active Substance: NITROGLYCERIN
     Indication: INTRAOPERATIVE CARE
     Dosage: UNK
     Route: 065
     Dates: start: 20180104, end: 20180105
  18. SPIRONOLACTONE. [Concomitant]
     Active Substance: SPIRONOLACTONE
     Dosage: UNK
     Route: 048
     Dates: start: 20180105, end: 20180129
  19. ENALAPRIL MALEATE. [Concomitant]
     Active Substance: ENALAPRIL MALEATE
     Dosage: UNK
     Route: 048
     Dates: end: 20180106
  20. DOBUTAMINE [Concomitant]
     Active Substance: DOBUTAMINE\DOBUTAMINE HYDROCHLORIDE
     Indication: INTRAOPERATIVE CARE
     Dosage: UNK
     Route: 065
     Dates: start: 20180104, end: 20180108
  21. REVATIO [Concomitant]
     Active Substance: SILDENAFIL CITRATE
     Route: 048
  22. ZYVOX [Concomitant]
     Active Substance: LINEZOLID
     Indication: PROPHYLAXIS
     Dosage: UNK
     Route: 065
     Dates: start: 20180104, end: 20180109
  23. BERIPLEX P/N [Suspect]
     Active Substance: COAGULATION FACTOR IX HUMAN\COAGULATION FACTOR VII HUMAN\COAGULATION FACTOR X HUMAN\PROTEIN C\PROTEIN S HUMAN\PROTHROMBIN
     Indication: SURGERY
     Dosage: 500 IU, UNK
     Route: 042
     Dates: start: 20171221, end: 20171221
  24. NORADRENALINE                      /00127501/ [Concomitant]
     Active Substance: NOREPINEPHRINE
     Indication: POSTOPERATIVE CARE
  25. LASIX [Concomitant]
     Active Substance: FUROSEMIDE
     Dosage: UNK
     Route: 065
     Dates: start: 20180109
  26. WARFARIN [Concomitant]
     Active Substance: WARFARIN
     Indication: ANTICOAGULANT THERAPY
     Dosage: 2 MG, UNK
     Route: 048
     Dates: start: 20180105
  27. MEROPENEM. [Concomitant]
     Active Substance: MEROPENEM
     Indication: PROPHYLAXIS
     Dosage: UNK
     Route: 065
     Dates: start: 20180104, end: 20180113
  28. FUROSEMIDE. [Concomitant]
     Active Substance: FUROSEMIDE
     Dosage: UNK
     Route: 048
     Dates: start: 20180105, end: 20180129

REACTIONS (1)
  - Rash [Recovering/Resolving]

NARRATIVE: CASE EVENT DATE: 20180116
